FAERS Safety Report 23403950 (Version 1)
Quarter: 2024Q1

REPORT INFORMATION
  Report Type: Spontaneous
  Country: FR (occurrence: FR)
  Receive Date: 20240116
  Receipt Date: 20240116
  Transmission Date: 20240410
  Serious: Yes (Hospitalization)
  Sender: FDA-Public Use
  Company Number: None

PATIENT
  Age: 82 Year
  Sex: Male
  Weight: 74 kg

DRUGS (1)
  1. NPLATE [Suspect]
     Active Substance: ROMIPLOSTIM
     Indication: Immune thrombocytopenia
     Dosage: 500 MICROGRAM
     Route: 058
     Dates: start: 20231128, end: 20231212

REACTIONS (1)
  - Peripheral ischaemia [Recovering/Resolving]

NARRATIVE: CASE EVENT DATE: 20231213
